FAERS Safety Report 12922280 (Version 1)
Quarter: 2016Q4

REPORT INFORMATION
  Report Type: Spontaneous
  Country: BR (occurrence: BR)
  Receive Date: 20161108
  Receipt Date: 20161108
  Transmission Date: 20170207
  Serious: Yes (Other)
  Sender: FDA-Public Use
  Company Number: BR-SA-2016SA201772

PATIENT
  Age: 71 Year
  Sex: Male
  Weight: 79 kg

DRUGS (14)
  1. CLARITHROMYCIN. [Suspect]
     Active Substance: CLARITHROMYCIN
     Indication: ANTIBIOTIC THERAPY
     Route: 042
     Dates: start: 20160817, end: 20160827
  2. MIDAZOLAM [Suspect]
     Active Substance: MIDAZOLAM\MIDAZOLAM HYDROCHLORIDE
     Dosage: PUMP
     Route: 042
     Dates: start: 20160818
  3. NOREPINEPHRINE [Suspect]
     Active Substance: NOREPINEPHRINE\NOREPINEPHRINE BITARTRATE
     Indication: CARDIAC FAILURE
     Route: 058
     Dates: start: 20160819
  4. BROMOPRIDE [Suspect]
     Active Substance: BROMOPRIDE
     Indication: NAUSEA
     Route: 042
     Dates: start: 20160818
  5. ENOXAPARIN SODIUM. [Suspect]
     Active Substance: ENOXAPARIN SODIUM
     Indication: THROMBOSIS PROPHYLAXIS
     Route: 058
     Dates: start: 20160819
  6. RANITIDINE. [Suspect]
     Active Substance: RANITIDINE
     Indication: GASTRITIS PROPHYLAXIS
     Dosage: RANITIDINE AMPOULE TEUTO 25 MG/2ML
     Route: 042
     Dates: start: 20160824
  7. CEFTRIAXONE. [Suspect]
     Active Substance: CEFTRIAXONE
     Indication: ANTIBIOTIC THERAPY
     Route: 042
     Dates: start: 20160817, end: 20160827
  8. BROMOPRIDE [Suspect]
     Active Substance: BROMOPRIDE
     Indication: VOMITING
     Route: 042
     Dates: start: 20160818
  9. MINERAL OIL EMULSION [Suspect]
     Active Substance: MINERAL OIL EMULSION
     Dosage: VIA INTRA NASOGASTRICTUBE
     Dates: start: 20160822
  10. CHLORPROMAZINE. [Suspect]
     Active Substance: CHLORPROMAZINE
     Route: 065
  11. RANITIDINE. [Suspect]
     Active Substance: RANITIDINE
     Indication: GASTRITIS PROPHYLAXIS
     Dosage: RANITIDINE AMPOULE TEUTO 25 MG/2ML
     Route: 042
     Dates: start: 20160820, end: 20160823
  12. DIPYRONE [Suspect]
     Active Substance: DIPYRONE
     Indication: ANALGESIC THERAPY
     Route: 042
     Dates: start: 20160820
  13. TAZOBACTAM/PIPERACILLIN [Suspect]
     Active Substance: PIPERACILLIN SODIUM\TAZOBACTAM SODIUM
     Indication: INFECTION
     Route: 042
     Dates: start: 20160822
  14. FENTANYL. [Suspect]
     Active Substance: FENTANYL
     Indication: ANALGESIC THERAPY
     Dosage: FENTANYL BRAND 16, FORM  PUMP
     Route: 042
     Dates: start: 20160818

REACTIONS (1)
  - Leukopenia [Recovered/Resolved]

NARRATIVE: CASE EVENT DATE: 20160824
